FAERS Safety Report 5117272-0 (Version None)
Quarter: 2006Q3

REPORT INFORMATION
  Report Type: 
  Country: None (occurrence: None)
  Receive Date: 20060926
  Receipt Date: 20060913
  Transmission Date: 20061208
  Serious: Yes (Hospitalization)
  Sender: FDA-Public Use
  Company Number: 2006PV021138

PATIENT
  Age: 69 Year
  Sex: Female
  Weight: 57.6068 kg

DRUGS (4)
  1. BYETTA [Suspect]
     Indication: DIABETES MELLITUS NON-INSULIN-DEPENDENT
     Dosage: 5 MCG; BID; SC
     Route: 058
     Dates: start: 20060806, end: 20060808
  2. BYETTA [Suspect]
     Indication: DIABETES MELLITUS NON-INSULIN-DEPENDENT
     Dosage: 5 MCG; BID; SC
     Route: 058
     Dates: start: 20060816
  3. GLIPIZIDE ER [Concomitant]
  4. HYDROCHLOROTHIAZDE TAB [Concomitant]

REACTIONS (3)
  - BLOOD GLUCOSE INCREASED [None]
  - KIDNEY INFECTION [None]
  - NAUSEA [None]
